FAERS Safety Report 19587096 (Version 1)
Quarter: 2021Q3

REPORT INFORMATION
  Report Type: Spontaneous
  Country: US (occurrence: US)
  Receive Date: 20210720
  Receipt Date: 20210720
  Transmission Date: 20211014
  Serious: Yes (Hospitalization)
  Sender: FDA-Public Use
  Company Number: None

PATIENT
  Age: 64 Year
  Sex: Female
  Weight: 62 kg

DRUGS (1)
  1. CEFEPIME [Suspect]
     Active Substance: CEFEPIME HYDROCHLORIDE
     Indication: PYELONEPHRITIS
     Route: 042
     Dates: start: 20210621, end: 20210628

REACTIONS (4)
  - Mental status changes [None]
  - Confusional state [None]
  - Toxic encephalopathy [None]
  - Muscle twitching [None]

NARRATIVE: CASE EVENT DATE: 20210627
